FAERS Safety Report 8112329-4 (Version None)
Quarter: 2012Q1

REPORT INFORMATION
  Report Type: 
  Country: None (occurrence: None)
  Receive Date: 20120203
  Receipt Date: 20111122
  Transmission Date: 20120608
  Serious: No
  Sender: FDA-Public Use
  Company Number: US-ASTRAZENECA-2011SE70874

PATIENT
  Age: 44 Year
  Sex: Female

DRUGS (3)
  1. LEVOXYL [Concomitant]
     Route: 048
  2. VANDETANIB [Suspect]
     Indication: THYROID CANCER
     Route: 048
     Dates: start: 20111103
  3. AMBIEN [Concomitant]
     Route: 048

REACTIONS (4)
  - COUGH [None]
  - GLOSSODYNIA [None]
  - VISION BLURRED [None]
  - DIARRHOEA [None]
